FAERS Safety Report 5897746-5 (Version None)
Quarter: 2008Q3

REPORT INFORMATION
  Report Type: 
  Country: None (occurrence: None)
  Receive Date: 20080925
  Receipt Date: 20080916
  Transmission Date: 20090109
  Serious: Yes (Hospitalization)
  Sender: FDA-Public Use
  Company Number: FR-BRISTOL-MYERS SQUIBB COMPANY-14346233

PATIENT
  Age: 52 Year
  Sex: Male

DRUGS (7)
  1. ENDOXAN [Suspect]
     Indication: PRIMARY PROGRESSIVE MULTIPLE SCLEROSIS
     Route: 042
     Dates: start: 20080818, end: 20080818
  2. FLUOXETINE HCL [Concomitant]
     Indication: DEPRESSION
     Route: 048
     Dates: end: 20080819
  3. URBANYL [Concomitant]
  4. NEXIUM [Concomitant]
  5. MOTILIUM [Concomitant]
  6. UROMITEXAN [Concomitant]
     Route: 042
     Dates: start: 20080818, end: 20080818
  7. SOLU-MEDROL [Concomitant]
     Dates: start: 20080818, end: 20080818

REACTIONS (3)
  - CONFUSIONAL STATE [None]
  - HYPONATRAEMIA [None]
  - VOMITING [None]
